FAERS Safety Report 5851730-6 (Version None)
Quarter: 2008Q3

REPORT INFORMATION
  Report Type: 
  Country: None (occurrence: None)
  Receive Date: 20080820
  Receipt Date: 20080808
  Transmission Date: 20090109
  Serious: Yes (Other)
  Sender: FDA-Public Use
  Company Number: PHHY2008IT14509

PATIENT
  Sex: Female

DRUGS (3)
  1. FEMARA [Suspect]
     Indication: BREAST CANCER
     Dosage: 2.5 MG DAILY
     Route: 048
     Dates: start: 20080630, end: 20080703
  2. URSODIOL [Concomitant]
     Indication: BILIARY CIRRHOSIS PRIMARY
  3. COAPROVEL [Concomitant]
     Indication: HYPERTENSION

REACTIONS (2)
  - ERYTHEMA [None]
  - LIP SWELLING [None]
